FAERS Safety Report 7556709-4 (Version None)
Quarter: 2011Q2

REPORT INFORMATION
  Report Type: 
  Country: None (occurrence: None)
  Receive Date: 20110620
  Receipt Date: 20110614
  Transmission Date: 20111010
  Serious: Yes (Hospitalization, Other)
  Sender: FDA-Public Use
  Company Number: GR-PFIZER INC-2011130916

PATIENT

DRUGS (1)
  1. VORICONAZOLE [Suspect]
     Dosage: UNK
     Dates: start: 20110101

REACTIONS (1)
  - HAEMORRHAGE [None]
